FAERS Safety Report 6742853-8 (Version None)
Quarter: 2010Q2

REPORT INFORMATION
  Report Type: 
  Country: None (occurrence: None)
  Receive Date: 20100525
  Receipt Date: 20100429
  Transmission Date: 20101027
  Serious: Yes (Hospitalization, Other)
  Sender: FDA-Public Use
  Company Number: 2010ST000056

PATIENT
  Age: 81 Year
  Sex: Female

DRUGS (3)
  1. ZEGERID [Suspect]
     Indication: EXCORIATION
     Dosage: 40 MG;QD;PO
     Route: 048
     Dates: start: 20100301, end: 20100301
  2. ACTOS [Concomitant]
  3. LISINOPRIL [Concomitant]

REACTIONS (24)
  - ANAPHYLACTIC REACTION [None]
  - BALANCE DISORDER [None]
  - BLOOD PRESSURE INCREASED [None]
  - CLONUS [None]
  - CONFUSIONAL STATE [None]
  - CONVULSION [None]
  - COPROLALIA [None]
  - DISTURBANCE IN ATTENTION [None]
  - FACIAL PAIN [None]
  - HALLUCINATION, AUDITORY [None]
  - HEAD INJURY [None]
  - INSOMNIA [None]
  - LOSS OF CONSCIOUSNESS [None]
  - MALAISE [None]
  - MENTAL IMPAIRMENT [None]
  - MUSCLE TIGHTNESS [None]
  - NIGHTMARE [None]
  - PERSONALITY CHANGE [None]
  - SKIN LACERATION [None]
  - TARDIVE DYSKINESIA [None]
  - TETANY [None]
  - THINKING ABNORMAL [None]
  - VISUAL IMPAIRMENT [None]
  - VOMITING [None]
